FAERS Safety Report 4861540-4 (Version None)
Quarter: 2005Q4

REPORT INFORMATION
  Report Type: 
  Country: None (occurrence: None)
  Receive Date: 20051220
  Receipt Date: 20051209
  Transmission Date: 20060501
  Serious: Yes (Other)
  Sender: FDA-Public Use
  Company Number: CA-BRISTOL-MYERS SQUIBB COMPANY-13220876

PATIENT
  Age: 79 Year
  Sex: Female

DRUGS (11)
  1. TEQUIN [Suspect]
     Route: 048
  2. ENTERIC COATED ACETYLSALICYLIC ACID [Concomitant]
     Route: 048
  3. ATROVENT [Concomitant]
     Route: 055
  4. BACLOFEN [Concomitant]
     Route: 048
  5. GABAPENTIN [Concomitant]
     Route: 048
  6. GLYBURIDE [Concomitant]
     Route: 048
  7. LOSEC [Concomitant]
     Route: 048
  8. QUININE [Concomitant]
     Route: 048
  9. TYLENOL [Concomitant]
  10. VASOTEC [Concomitant]
     Route: 048
  11. VENTOLIN [Concomitant]
     Route: 055

REACTIONS (1)
  - HYPERGLYCAEMIA [None]
